FAERS Safety Report 4913499-9 (Version None)
Quarter: 2006Q1

REPORT INFORMATION
  Report Type: 
  Country: None (occurrence: None)
  Receive Date: 20060216
  Receipt Date: 20060207
  Transmission Date: 20060701
  Serious: Yes (Hospitalization, Other)
  Sender: FDA-Public Use
  Company Number: GB-JNJFOC-20060202250

PATIENT
  Sex: Female
  Weight: 98 kg

DRUGS (12)
  1. REMICADE [Suspect]
     Indication: RHEUMATOID ARTHRITIS
     Route: 042
  2. METHOTREXATE [Concomitant]
  3. BISOPROLOL [Concomitant]
  4. CELECOXIB [Concomitant]
  5. FOLIC ACID [Concomitant]
  6. HYPROMELLOSE [Concomitant]
  7. LANSOPRAZOLE [Concomitant]
  8. LISINOPRIL [Concomitant]
  9. ACETAMINOPHEN [Concomitant]
  10. THYROXINE [Concomitant]
  11. TRAMADOL [Concomitant]
  12. WARFARIN SODIUM [Concomitant]

REACTIONS (2)
  - ATRIAL FIBRILLATION [None]
  - PALPITATIONS [None]
